FAERS Safety Report 4323734-6 (Version None)
Quarter: 2004Q1

REPORT INFORMATION
  Report Type: 
  Country: None (occurrence: None)
  Receive Date: 20040323
  Receipt Date: 20040312
  Transmission Date: 20041129
  Serious: Yes (Death)
  Sender: FDA-Public Use
  Company Number: 2004-DE-01237GD

PATIENT
  Age: 3 Month

DRUGS (4)
  1. CYCLOPHOSPHAMIDE [Suspect]
     Indication: BONE MARROW CONDITIONING REGIMEN
     Dosage: 200 MG/KG I.V. INFUSION IN DIVIDED DOSES OVER 4 DAYS (NR), IV
     Route: 042
  2. RT-PA (ALTEPLASE) [Suspect]
     Indication: VENOOCCLUSIVE LIVER DISEASE
     Dosage: SEE TEXT, IV
     Route: 042
  3. BUSULPHAN (BUSULFAN) [Suspect]
     Indication: BONE MARROW CONDITIONING REGIMEN
     Dosage: 16 MG/KG IN DIVIDED DOSES OVER 4 DAYS, PO
     Route: 048
  4. HEPARIN [Concomitant]

REACTIONS (2)
  - MULTI-ORGAN FAILURE [None]
  - VENOOCCLUSIVE LIVER DISEASE [None]
